FAERS Safety Report 9520232 (Version 1)
Quarter: 2013Q1

REPORT INFORMATION
  Report Type: Spontaneous
  Country: US (occurrence: None)
  Receive Date: 20130305
  Receipt Date: 20130305
  Transmission Date: 20140127
  Serious: Yes (Other)
  Sender: FDA-Public Use
  Company Number: 163-21880-12022808

PATIENT
  Age: 64 Year
  Sex: Male
  Weight: 117.94 kg

DRUGS (13)
  1. REVLIMID (LENALIDOMIDE) (25 MILLIGRAM, CAPSULES) [Suspect]
     Indication: PLASMA CELL MYELOMA
     Dosage: 25MG, DAILY X 21 DAYS Q 28 DAYS
     Dates: start: 20111102
  2. ACYCLOVIR (ACICLOVIR) (ACICLOVIR) [Concomitant]
  3. ANDROGEL (TESTOSTERONE) [Concomitant]
  4. ATIVAN (LORAZEPAM) [Concomitant]
  5. OSCAL (CALCIUM CARBONATE) [Concomitant]
  6. VITAMINS [Concomitant]
  7. POMEGRANATE [Concomitant]
  8. SAW PALMETTO (SERENOA REPENS) [Concomitant]
  9. VITAMIN C [Concomitant]
  10. DECADRON (DEXAMETHASONE) [Concomitant]
  11. KLOR-CON (POTASSIUM CHLORIDE) [Concomitant]
  12. DEXAMETHASONE (DEXAMETHASONE) [Concomitant]
  13. ASPIRIN [Concomitant]

REACTIONS (6)
  - Thrombosis [None]
  - Gastroenteritis viral [None]
  - Lower respiratory tract infection [None]
  - Respiratory tract infection [None]
  - Joint swelling [None]
  - Diarrhoea [None]
